FAERS Safety Report 5196614-4 (Version None)
Quarter: 2006Q4

REPORT INFORMATION
  Report Type: 
  Country: None (occurrence: None)
  Receive Date: 20061227
  Receipt Date: 20061215
  Transmission Date: 20070319
  Serious: Yes (Other)
  Sender: FDA-Public Use
  Company Number: 2006300298

PATIENT
  Age: 14 Year
  Sex: Female

DRUGS (2)
  1. SUDAFED S.A. [Suspect]
     Dosage: ONCE, ORAL
     Route: 048
     Dates: start: 20061122, end: 20061122
  2. TRIAMINIC-12 [Suspect]
     Dosage: 3 TSP ONCE, ORAL
     Route: 048
     Dates: start: 20061122, end: 20061122

REACTIONS (3)
  - HYPERVENTILATION [None]
  - HYPOAESTHESIA [None]
  - TREMOR [None]
